FAERS Safety Report 13822534 (Version 1)
Quarter: 2017Q3

REPORT INFORMATION
  Report Type: Spontaneous
  Country: FR (occurrence: FR)
  Receive Date: 20170801
  Receipt Date: 20170801
  Transmission Date: 20171127
  Serious: Yes (Death, Life-Threatening, Hospitalization, Other)
  Sender: FDA-Public Use
  Company Number: FR-BRISTOL-MYERS SQUIBB COMPANY-BMS-2017-067767

PATIENT
  Age: 68 Year
  Sex: Male

DRUGS (1)
  1. OPDIVO [Suspect]
     Active Substance: NIVOLUMAB
     Indication: LUNG NEOPLASM MALIGNANT
     Dosage: 246 MG, UNK
     Route: 042
     Dates: start: 20161219

REACTIONS (4)
  - Toxic shock syndrome [Fatal]
  - Acute kidney injury [Fatal]
  - General physical health deterioration [Unknown]
  - Hypotension [Unknown]

NARRATIVE: CASE EVENT DATE: 20170106
